FAERS Safety Report 7369462-4 (Version None)
Quarter: 2011Q1

REPORT INFORMATION
  Report Type: 
  Country: None (occurrence: None)
  Receive Date: 20110323
  Receipt Date: 20110308
  Transmission Date: 20110831
  Serious: Yes (Other)
  Sender: FDA-Public Use
  Company Number: PHHY2011US01785

PATIENT
  Sex: Female

DRUGS (1)
  1. EXJADE [Suspect]
     Indication: LYMPHOPROLIFERATIVE DISORDER
     Dosage: 2000 MG, QD
     Route: 048
     Dates: start: 20100517

REACTIONS (6)
  - IRON OVERLOAD [None]
  - SINUSITIS [None]
  - ASTHENIA [None]
  - FATIGUE [None]
  - CONVULSION [None]
  - INFLUENZA LIKE ILLNESS [None]
